FAERS Safety Report 16573071 (Version 1)
Quarter: 2019Q3

REPORT INFORMATION
  Report Type: Spontaneous
  Country: US (occurrence: US)
  Receive Date: 20190715
  Receipt Date: 20190715
  Transmission Date: 20191004
  Serious: No
  Sender: FDA-Public Use
  Company Number: US-BIODELIVERY SCIENCES INTERNATIONAL-2018BDSI0359

PATIENT
  Sex: Male
  Weight: 77.63 kg

DRUGS (4)
  1. BUPRENORPHINE/NALOXONE [Suspect]
     Active Substance: BUPRENORPHINE\NALOXONE
     Dosage: 2.1 MG/0.3 MG ALTERNATE DAYS
     Route: 002
     Dates: start: 201806
  2. BUPRENORPHINE/NALOXONE [Suspect]
     Active Substance: BUPRENORPHINE\NALOXONE
     Indication: DRUG DEPENDENCE
     Dosage: 4.2MG/0.7MG
     Route: 002
     Dates: start: 201607, end: 201608
  3. BUPRENORPHINE/NALOXONE [Suspect]
     Active Substance: BUPRENORPHINE\NALOXONE
     Dosage: 4.2 MG/0.7 MG ALTERNATE DAYS
     Route: 002
     Dates: start: 201806
  4. BUPRENORPHINE/NALOXONE [Suspect]
     Active Substance: BUPRENORPHINE\NALOXONE
     Dosage: 4.2MG/0.7MG
     Route: 002
     Dates: start: 201609, end: 201806

REACTIONS (7)
  - Product adhesion issue [Unknown]
  - Product physical consistency issue [Unknown]
  - Product solubility abnormal [Unknown]
  - Incorrect route of product administration [Unknown]
  - Wrong technique in product usage process [Unknown]
  - Oral administration complication [Unknown]
  - Product colour issue [Unknown]
